FAERS Safety Report 5467427-0 (Version None)
Quarter: 2007Q3

REPORT INFORMATION
  Report Type: 
  Country: None (occurrence: None)
  Receive Date: 20070925
  Receipt Date: 20070913
  Transmission Date: 20080115
  Serious: Yes (Other)
  Sender: FDA-Public Use
  Company Number: FR-PFIZER INC-2007077071

PATIENT
  Age: 39 Year
  Sex: Female

DRUGS (3)
  1. CYTOTEC [Suspect]
     Dates: start: 20070324, end: 20070324
  2. MIFEGYNE [Suspect]
     Dates: start: 20070322, end: 20070322
  3. VOLTAREN [Concomitant]
     Route: 054
     Dates: start: 20070324, end: 20070324

REACTIONS (2)
  - DRUG INEFFECTIVE FOR UNAPPROVED INDICATION [None]
  - INDUCED ABORTION FAILED [None]
